FAERS Safety Report 7308212-4 (Version None)
Quarter: 2011Q1

REPORT INFORMATION
  Report Type: 
  Country: None (occurrence: None)
  Receive Date: 20110223
  Receipt Date: 20110216
  Transmission Date: 20110831
  Serious: Yes (Hospitalization)
  Sender: FDA-Public Use
  Company Number: JP-ROCHE-761354

PATIENT
  Age: 27 Year
  Sex: Male
  Weight: 63 kg

DRUGS (4)
  1. HACHIAZULE [Concomitant]
     Dosage: DRUG NAME:HACHIAZULE(AZULENE.SODIUM BICARBONATE), DOSE FORM: INCLUDE ASPECT, ROUTE: OROPHARINGEAL,
     Route: 050
  2. TAMIFLU [Suspect]
     Indication: INFLUENZA
     Route: 048
     Dates: start: 20110128, end: 20110129
  3. CALONAL [Concomitant]
     Dosage: DRUG NAME: CALONAL(ACETAMINOPHEN), DOSAGE IS UNCERTAIN.
     Route: 048
  4. LOXONIN [Concomitant]
     Dosage: DOSAGE IS UNCERTAIN.
     Route: 048

REACTIONS (1)
  - ABNORMAL BEHAVIOUR [None]
